FAERS Safety Report 17930315 (Version 1)
Quarter: 2020Q2

REPORT INFORMATION
  Report Type: Report from Study
  Country: US (occurrence: US)
  Receive Date: 20200623
  Receipt Date: 20200623
  Transmission Date: 20200714
  Serious: Yes (Other)
  Sender: FDA-Public Use
  Company Number: US-ASTRAZENECA-2020SE64970

PATIENT
  Age: 76 Year
  Sex: Male
  Weight: 98 kg

DRUGS (21)
  1. ERGOCALCIFEROL. [Concomitant]
     Active Substance: ERGOCALCIFEROL
  2. FAMOTIDINE. [Concomitant]
     Active Substance: FAMOTIDINE
  3. NORVASC [Concomitant]
     Active Substance: AMLODIPINE BESYLATE
  4. PROSCAR [Concomitant]
     Active Substance: FINASTERIDE
  5. AVAPRO [Concomitant]
     Active Substance: IRBESARTAN
  6. VITAMIN D2 [Concomitant]
     Active Substance: ERGOCALCIFEROL
  7. NORCO [Concomitant]
     Active Substance: ACETAMINOPHEN\HYDROCODONE BITARTRATE
     Dosage: 5-325 MG
  8. ZOFRAN [Concomitant]
     Active Substance: ONDANSETRON HYDROCHLORIDE
  9. HYDROCHLOROTHIAZIDE. [Concomitant]
     Active Substance: HYDROCHLOROTHIAZIDE
  10. COENZYME Q10 [Concomitant]
     Active Substance: UBIDECARENONE
  11. LOPRESSOR [Concomitant]
     Active Substance: METOPROLOL TARTRATE
  12. LIPITOR [Concomitant]
     Active Substance: ATORVASTATIN CALCIUM
  13. METFORMIN [Concomitant]
     Active Substance: METFORMIN HYDROCHLORIDE
  14. NEURONTIN [Concomitant]
     Active Substance: GABAPENTIN
  15. METOPROLOL TARTRATE. [Suspect]
     Active Substance: METOPROLOL TARTRATE
     Route: 048
  16. AVAPRO [Concomitant]
     Active Substance: IRBESARTAN
  17. LYNPARZA [Suspect]
     Active Substance: OLAPARIB
     Indication: BREAST CANCER MALE
     Route: 048
     Dates: start: 20191018, end: 20200512
  18. XARELTO [Concomitant]
     Active Substance: RIVAROXABAN
  19. LORAZEPAM. [Concomitant]
     Active Substance: LORAZEPAM
  20. FLOMAX [Concomitant]
     Active Substance: TAMSULOSIN HYDROCHLORIDE
  21. BIOTIN [Concomitant]
     Active Substance: BIOTIN

REACTIONS (3)
  - Drug ineffective [Unknown]
  - Malignant neoplasm progression [Unknown]
  - Breast cancer male [Unknown]
